FAERS Safety Report 12988724 (Version 1)
Quarter: 2016Q4

REPORT INFORMATION
  Report Type: Spontaneous
  Country: US (occurrence: US)
  Receive Date: 20161130
  Receipt Date: 20161130
  Transmission Date: 20170207
  Serious: No
  Sender: FDA-Public Use
  Company Number: US-TAIHO ONCOLOGY INC-EU-2016-02238

PATIENT
  Sex: Female

DRUGS (1)
  1. LONSURF [Suspect]
     Active Substance: TIPIRACIL HYDROCHLORIDE\TRIFLURIDINE
     Indication: COLON CANCER
     Route: 048
     Dates: start: 20160725, end: 2016

REACTIONS (4)
  - Muscle spasms [Unknown]
  - Alopecia [Unknown]
  - Disease progression [Unknown]
  - Nausea [Unknown]

NARRATIVE: CASE EVENT DATE: 2016
